FAERS Safety Report 9068535 (Version 1)
Quarter: 2013Q1

REPORT INFORMATION
  Report Type: Spontaneous
  Country: US (occurrence: US)
  Receive Date: 20130206
  Receipt Date: 20130206
  Transmission Date: 20140127
  Serious: Yes (Other)
  Sender: FDA-Public Use
  Company Number: PHHY2013US009625

PATIENT
  Age: 17 Year
  Sex: Male

DRUGS (3)
  1. DIGOXIN [Suspect]
  2. PROPAFENONE [Suspect]
  3. DOFETILIDE [Concomitant]

REACTIONS (1)
  - Atrial fibrillation [Recovering/Resolving]
